FAERS Safety Report 5750250-7 (Version None)
Quarter: 2008Q2

REPORT INFORMATION
  Report Type: 
  Country: None (occurrence: None)
  Receive Date: 20080527
  Receipt Date: 20080520
  Transmission Date: 20081010
  Serious: Yes (Other)
  Sender: FDA-Public Use
  Company Number: JP-PFIZER INC-2008044231

PATIENT
  Age: 73 Year

DRUGS (1)
  1. ATARAX [Suspect]

REACTIONS (1)
  - DEMENTIA [None]
